FAERS Safety Report 8223710-7 (Version None)
Quarter: 2012Q1

REPORT INFORMATION
  Report Type: 
  Country: None (occurrence: None)
  Receive Date: 20120316
  Receipt Date: 20120229
  Transmission Date: 20120608
  Serious: Yes (Death, Hospitalization, Other)
  Sender: FDA-Public Use
  Company Number: THQ2012A00689

PATIENT
  Age: 64 Year
  Sex: Male

DRUGS (3)
  1. PIOGLITAZONE HCL [Suspect]
     Indication: DIABETES MELLITUS
     Dosage: 15 MG (1 D) PER ORAL
     Route: 048
  2. ATACAND HCT [Concomitant]
  3. TAFIL (APRAZOLEM) [Concomitant]

REACTIONS (3)
  - BLOOD GLUCOSE ABNORMAL [None]
  - ATRIAL FIBRILLATION [None]
  - ACUTE MYOCARDIAL INFARCTION [None]
